FAERS Safety Report 9620275 (Version 2)
Quarter: 2013Q4

REPORT INFORMATION
  Report Type: Spontaneous
  Country: US (occurrence: US)
  Receive Date: 20131014
  Receipt Date: 20131014
  Transmission Date: 20140711
  Serious: No
  Sender: FDA-Public Use
  Company Number: US-ALLERGAN-1305681US

PATIENT
  Age: 65 Year
  Sex: Female

DRUGS (5)
  1. ALPHAGAN P [Suspect]
     Indication: INTRAOCULAR PRESSURE INCREASED
     Dosage: 2 GTT, TID
     Route: 047
     Dates: start: 201303
  2. DORZOLAMIDE [Concomitant]
     Indication: INTRAOCULAR PRESSURE INCREASED
  3. LATANOPROST [Concomitant]
     Indication: INTRAOCULAR PRESSURE INCREASED
  4. HIGH BLOOD PRESSURE PILLS NOS [Concomitant]
     Indication: PRODUCT USED FOR UNKNOWN INDICATION
  5. DEXILANT [Concomitant]
     Indication: GASTROOESOPHAGEAL REFLUX DISEASE

REACTIONS (2)
  - Dysgeusia [Not Recovered/Not Resolved]
  - Dyspepsia [Recovered/Resolved]
